FAERS Safety Report 6289113-X (Version None)
Quarter: 2009Q3

REPORT INFORMATION
  Report Type: 
  Country: None (occurrence: None)
  Receive Date: 20090729
  Receipt Date: 20090616
  Transmission Date: 20100115
  Serious: Yes (Other)
  Sender: FDA-Public Use
  Company Number: US-GENENTECH-287669

PATIENT
  Sex: Female

DRUGS (1)
  1. XOLAIR [Suspect]
     Indication: ASTHMA
     Dosage: 300 MG, Q4W
     Dates: start: 20050501, end: 20090424

REACTIONS (5)
  - ANXIETY [None]
  - HYPERSENSITIVITY [None]
  - PALPITATIONS [None]
  - SENSATION OF FOREIGN BODY [None]
  - THROAT TIGHTNESS [None]
